FAERS Safety Report 7761788-5 (Version None)
Quarter: 2011Q3

REPORT INFORMATION
  Report Type: 
  Country: None (occurrence: None)
  Receive Date: 20110920
  Receipt Date: 20110914
  Transmission Date: 20111222
  Serious: No
  Sender: FDA-Public Use
  Company Number: PHEH2011US04180

PATIENT
  Sex: Male

DRUGS (1)
  1. TASIGNA [Suspect]
     Indication: CHRONIC MYELOID LEUKAEMIA
     Dosage: 300 MG, BID
     Route: 048
     Dates: start: 20110404

REACTIONS (6)
  - DRY EYE [None]
  - ABNORMAL SENSATION IN EYE [None]
  - FOREIGN BODY SENSATION IN EYES [None]
  - MEMORY IMPAIRMENT [None]
  - CONSTIPATION [None]
  - PHOTOPHOBIA [None]
